FAERS Safety Report 15864769 (Version 6)
Quarter: 2019Q3

REPORT INFORMATION
  Report Type: Report from Study
  Country: US (occurrence: US)
  Receive Date: 20190124
  Receipt Date: 20190909
  Transmission Date: 20191004
  Serious: Yes (Hospitalization, Other)
  Sender: FDA-Public Use
  Company Number: US-ACTELION-A-NJ2018-176496

PATIENT
  Age: 82 Year
  Sex: Female
  Weight: 56.69 kg

DRUGS (7)
  1. UPTRAVI [Suspect]
     Active Substance: SELEXIPAG
     Dosage: 1600 MCG, BID
     Route: 048
  2. UPTRAVI [Suspect]
     Active Substance: SELEXIPAG
     Dosage: 200 MCG, BID
     Route: 048
  3. UPTRAVI [Suspect]
     Active Substance: SELEXIPAG
     Dosage: 1400 MCG, BID
     Route: 048
  4. UPTRAVI [Suspect]
     Active Substance: SELEXIPAG
     Dosage: 800 MCG, BID
     Route: 048
  5. UPTRAVI [Suspect]
     Active Substance: SELEXIPAG
     Indication: PULMONARY ARTERIAL HYPERTENSION
     Dosage: 1200 MCG, BID
     Route: 048
  6. UPTRAVI [Suspect]
     Active Substance: SELEXIPAG
     Dosage: 1000 MCG, BID
     Route: 048
  7. ADEMPAS [Concomitant]
     Active Substance: RIOCIGUAT

REACTIONS (25)
  - Therapy non-responder [Unknown]
  - Cystitis noninfective [Unknown]
  - Clostridium difficile infection [Unknown]
  - Weight decreased [Unknown]
  - Dyspepsia [Unknown]
  - Cardiac failure congestive [Unknown]
  - Diarrhoea [Unknown]
  - Hospitalisation [Unknown]
  - Urinary retention [Unknown]
  - Decreased appetite [Unknown]
  - Peripheral swelling [Unknown]
  - Dyspnoea exertional [Recovering/Resolving]
  - Cholelithiasis [Unknown]
  - Nausea [Unknown]
  - Taste disorder [Unknown]
  - Cholecystitis [Unknown]
  - Pneumonia [Unknown]
  - Abdominal discomfort [Unknown]
  - Dyspnoea at rest [Unknown]
  - Urinary tract infection [Unknown]
  - Constipation [Unknown]
  - Eye swelling [Unknown]
  - Anaemia [Unknown]
  - White blood cell count decreased [Unknown]
  - Product dose omission [Unknown]

NARRATIVE: CASE EVENT DATE: 201907
